FAERS Safety Report 6273106-2 (Version None)
Quarter: 2009Q3

REPORT INFORMATION
  Report Type: 
  Country: None (occurrence: None)
  Receive Date: 20090715
  Receipt Date: 20090715
  Transmission Date: 20100115
  Serious: Yes (Other)
  Sender: FDA-Public Use
  Company Number: None

PATIENT
  Sex: Male
  Weight: 28.8941 kg

DRUGS (6)
  1. LENALIDOMIDE -REVLIMID- 2.5 MG CELGENE [Suspect]
     Indication: AUTISM
     Dosage: 2.5 MG DAILY OTHER
     Route: 050
     Dates: start: 20090519, end: 20090708
  2. NAMENDA [Concomitant]
  3. RISPERDAL [Concomitant]
  4. CELEXA [Concomitant]
  5. ZANAFLEX [Concomitant]
  6. PREDNISONE [Concomitant]

REACTIONS (1)
  - ECZEMA [None]
